FAERS Safety Report 20759868 (Version 1)
Quarter: 2022Q2

REPORT INFORMATION
  Report Type: Report from Study
  Country: US (occurrence: US)
  Receive Date: 20220427
  Receipt Date: 20220427
  Transmission Date: 20220721
  Serious: Yes (Other)
  Sender: FDA-Public Use
  Company Number: US-SA-2022SA143980

PATIENT
  Age: 51 Year
  Sex: Female

DRUGS (1)
  1. DUPILUMAB [Suspect]
     Active Substance: DUPILUMAB
     Indication: Dermatitis atopic
     Dosage: UNK

REACTIONS (6)
  - Punctate keratitis [Unknown]
  - Lacrimation increased [Unknown]
  - Photophobia [Unknown]
  - Eye pruritus [Unknown]
  - Conjunctival papillae [Unknown]
  - Conjunctival hyperaemia [Unknown]
